FAERS Safety Report 8921302 (Version 1)
Quarter: 2012Q4

REPORT INFORMATION
  Report Type: 
  Country: IT (occurrence: IT)
  Receive Date: 20121122
  Receipt Date: 20121122
  Transmission Date: 20130627
  Serious: Yes (Life-Threatening, Hospitalization)
  Sender: FDA-Public Use
  Company Number: IT-BRISTOL-MYERS SQUIBB COMPANY-17123977

PATIENT
  Age: 40 Year
  Sex: Male

DRUGS (3)
  1. MODITEN [Suspect]
     Indication: SCHIZOPHRENIA
     Route: 030
     Dates: start: 20120927, end: 20121010
  2. ABILIFY [Suspect]
     Route: 048
     Dates: start: 20120925, end: 20121010
  3. ENTUMINE [Suspect]
     Route: 048
     Dates: start: 20120925, end: 20121010

REACTIONS (2)
  - Coma [Unknown]
  - Convulsion [Unknown]
